FAERS Safety Report 4356151-3 (Version None)
Quarter: 2004Q2

REPORT INFORMATION
  Report Type: 
  Country: None (occurrence: None)
  Receive Date: 20040506
  Receipt Date: 20040423
  Transmission Date: 20050107
  Serious: No
  Sender: FDA-Public Use
  Company Number: 2004201472JP

PATIENT
  Age: 75 Year
  Sex: Male
  Weight: 70 kg

DRUGS (1)
  1. XALATAN [Suspect]
     Indication: GLAUCOMA
     Dosage: 1GTT,QD, OPHTHALMIC
     Route: 047
     Dates: start: 20030409, end: 20030522

REACTIONS (1)
  - CORNEAL EPITHELIUM DISORDER [None]
